FAERS Safety Report 20061746 (Version 4)
Quarter: 2022Q1

REPORT INFORMATION
  Report Type: Spontaneous
  Country: US (occurrence: US)
  Receive Date: 20211112
  Receipt Date: 20220304
  Transmission Date: 20220423
  Serious: Yes (Other)
  Sender: FDA-Public Use
  Company Number: US-AMGEN-USASP2021170192

PATIENT
  Age: 69 Year
  Sex: Female

DRUGS (1)
  1. REPATHA [Suspect]
     Active Substance: EVOLOCUMAB
     Indication: Blood cholesterol increased
     Dosage: 140 MILLIGRAM, Q2WK
     Route: 065
     Dates: start: 20210630

REACTIONS (4)
  - Urticaria [Recovered/Resolved]
  - Arteriosclerosis coronary artery [Unknown]
  - Drug resistance [Unknown]
  - Lipids increased [Unknown]

NARRATIVE: CASE EVENT DATE: 20210701
